FAERS Safety Report 23066105 (Version 2)
Quarter: 2024Q2

REPORT INFORMATION
  Report Type: Spontaneous
  Country: PL (occurrence: PL)
  Receive Date: 20231014
  Receipt Date: 20240518
  Transmission Date: 20240715
  Serious: Yes (Hospitalization, Other)
  Sender: FDA-Public Use
  Company Number: PL-Accord-383134

PATIENT
  Age: 27 Year
  Sex: Male
  Weight: 88.7 kg

DRUGS (2)
  1. SERTRALINE [Interacting]
     Active Substance: SERTRALINE HYDROCHLORIDE
     Indication: Product used for unknown indication
  2. ALCOHOL [Interacting]
     Active Substance: ALCOHOL
     Indication: Product used for unknown indication

REACTIONS (2)
  - Overlap syndrome [Unknown]
  - Drug interaction [Unknown]

NARRATIVE: CASE EVENT DATE: 20200801
